FAERS Safety Report 6556720-6 (Version None)
Quarter: 2010Q1

REPORT INFORMATION
  Report Type: 
  Country: None (occurrence: None)
  Receive Date: 20100125
  Receipt Date: 20100112
  Transmission Date: 20100710
  Serious: Yes (Death, Other)
  Sender: FDA-Public Use
  Company Number: MC201000017

PATIENT

DRUGS (5)
  1. ANGIOMAX [Suspect]
     Indication: PERCUTANEOUS CORONARY INTERVENTION
     Dosage: 0.75 MG/KG, BOLUS, INTRAVENOUS; 1.75 MG/KG, HR FOR DURATION  OF PCI, INTRAVENOUS
     Route: 040
  2. ASPIRIN [Concomitant]
  3. CLOPIDOGREL [Concomitant]
  4. REOPRO [Concomitant]
  5. EPTIFIBATIDE (EPTIFIBATIDE) [Concomitant]

REACTIONS (5)
  - ARTERIAL INJURY [None]
  - CARDIOVASCULAR DISORDER [None]
  - HAEMORRHAGE [None]
  - RENAL FAILURE [None]
  - THROMBOSIS IN DEVICE [None]
